FAERS Safety Report 15518033 (Version 3)
Quarter: 2018Q4

REPORT INFORMATION
  Report Type: Spontaneous
  Country: DE (occurrence: DE)
  Receive Date: 20181017
  Receipt Date: 20181211
  Transmission Date: 20190205
  Serious: Yes (Hospitalization, Other)
  Sender: FDA-Public Use
  Company Number: DE-BAYER-2018-193721

PATIENT
  Age: 40 Year
  Sex: Female

DRUGS (4)
  1. MIRENA [Suspect]
     Active Substance: LEVONORGESTREL
     Indication: CONTRACEPTION
     Dosage: 20 MCG/24HR, CONT
     Route: 015
     Dates: start: 20170512
  2. MAXIM (DIENOGEST/ETHINYLESTRADIOL) [Suspect]
     Active Substance: DIENOGEST\ETHINYL ESTRADIOL
     Indication: CHEMICAL CONTRACEPTION
     Dosage: 1 DF, QD, IN LONGCYCLE
     Route: 048
     Dates: start: 2012
  3. MIRENA [Suspect]
     Active Substance: LEVONORGESTREL
     Indication: MENORRHAGIA
  4. MAXIM (DIENOGEST/ETHINYLESTRADIOL) [Suspect]
     Active Substance: DIENOGEST\ETHINYL ESTRADIOL
     Indication: CHEMICAL CONTRACEPTION
     Dosage: 1 DF, QD
     Route: 048
     Dates: start: 199510

REACTIONS (7)
  - Primary biliary cholangitis [Not Recovered/Not Resolved]
  - Transaminases increased [Not Recovered/Not Resolved]
  - Liver function test abnormal [Recovered/Resolved]
  - Medical device monitoring error [None]
  - Gamma-glutamyltransferase increased [Not Recovered/Not Resolved]
  - Product prescribing issue [None]
  - Product use issue [None]

NARRATIVE: CASE EVENT DATE: 2012
